FAERS Safety Report 8312800-6 (Version None)
Quarter: 2012Q2

REPORT INFORMATION
  Report Type: 
  Country: None (occurrence: None)
  Receive Date: 20120426
  Receipt Date: 20120423
  Transmission Date: 20120825
  Serious: No
  Sender: FDA-Public Use
  Company Number: US-PFIZER INC-2012100375

PATIENT
  Sex: Male

DRUGS (6)
  1. WARFARIN [Concomitant]
     Dosage: 3 MG, 1X/DAY
  2. DETROL LA [Concomitant]
     Dosage: 2 MG, 2X/DAY
  3. AGGRENOX [Concomitant]
     Dosage: UNK, 2X/DAY
  4. VIAGRA [Suspect]
     Indication: ERECTILE DYSFUNCTION
     Dosage: UNK, AS NEEDED
     Route: 048
     Dates: start: 20120201, end: 20120201
  5. GLYBURIDE [Concomitant]
     Dosage: 1.25 MG, 1X/DAY
  6. DOXAZOSIN [Concomitant]
     Dosage: 4 MG, 1X/DAY

REACTIONS (2)
  - VOMITING [None]
  - MALAISE [None]
